FAERS Safety Report 12788828 (Version 1)
Quarter: 2016Q3

REPORT INFORMATION
  Report Type: Spontaneous
  Country: US (occurrence: US)
  Receive Date: 20160928
  Receipt Date: 20160928
  Transmission Date: 20161109
  Serious: Yes (Disabling)
  Sender: FDA-Public Use
  Company Number: None

PATIENT
  Age: 53 Year
  Sex: Female
  Weight: 59.85 kg

DRUGS (1)
  1. CIPROFLOXACIN. [Suspect]
     Active Substance: CIPROFLOXACIN
     Indication: URINARY TRACT INFECTION
     Dosage: OTHER TWICE A DAY ORAL
     Route: 048

REACTIONS (7)
  - Feeling abnormal [None]
  - Dysuria [None]
  - Burning sensation [None]
  - Eye pain [None]
  - Muscle fatigue [None]
  - Musculoskeletal disorder [None]
  - Motor dysfunction [None]

NARRATIVE: CASE EVENT DATE: 20160913
